FAERS Safety Report 4708898-4 (Version None)
Quarter: 2005Q3

REPORT INFORMATION
  Report Type: 
  Country: None (occurrence: None)
  Receive Date: 20050707
  Receipt Date: 20050705
  Transmission Date: 20060218
  Serious: Yes (Other)
  Sender: FDA-Public Use
  Company Number: AU-MERCK-0507AUS00018

PATIENT
  Age: 56 Year
  Sex: Male

DRUGS (3)
  1. FOSAMAX [Suspect]
     Route: 048
  2. BECLOMETHASONE DIPROPIONATE [Concomitant]
     Route: 065
  3. BECLOMETHASONE DIPROPIONATE [Concomitant]
     Route: 065

REACTIONS (3)
  - PHARYNGEAL OEDEMA [None]
  - SKIN IRRITATION [None]
  - SWELLING FACE [None]
